FAERS Safety Report 21539289 (Version 1)
Quarter: 2022Q4

REPORT INFORMATION
  Report Type: Spontaneous
  Country: FR (occurrence: FR)
  Receive Date: 20221102
  Receipt Date: 20221102
  Transmission Date: 20230113
  Serious: Yes (Hospitalization)
  Sender: FDA-Public Use
  Company Number: None

PATIENT
  Age: 60 Year
  Sex: Male
  Weight: 62 kg

DRUGS (11)
  1. ALLOPURINOL [Suspect]
     Active Substance: ALLOPURINOL
     Indication: Hyperuricaemia
     Dosage: DURATION : 34 DAYS
     Dates: start: 20210525, end: 20210628
  2. ALLOPURINOL [Suspect]
     Active Substance: ALLOPURINOL
     Indication: Arthralgia
  3. RAMIPRIL [Suspect]
     Active Substance: RAMIPRIL
     Indication: Product used for unknown indication
     Dosage: DURATION ; 1DAY
     Dates: start: 20210615, end: 20210615
  4. INSPRA [Suspect]
     Active Substance: EPLERENONE
     Indication: Product used for unknown indication
     Dosage: DURATION : 8 DAYS
     Dates: start: 20210622, end: 20210630
  5. BISOPROLOL [Suspect]
     Active Substance: BISOPROLOL
     Indication: Product used for unknown indication
     Dosage: 3 TABLETS PER DAY , FORM STRENGTH : 1.25 MG , DURATION : 8 DAYS
     Dates: start: 20210622, end: 20210630
  6. LANSOPRAZOLE [Suspect]
     Active Substance: LANSOPRAZOLE
     Indication: Product used for unknown indication
     Dosage: 15 MILLIGRAM DAILY; 1 TABLET IN THE EVENING , FORM STRENGTH : 15 MG, DURATION : 4 DAYS
     Dates: start: 20210622, end: 20210626
  7. ENTRESTO [Suspect]
     Active Substance: SACUBITRIL\VALSARTAN
     Indication: Product used for unknown indication
     Dosage: 1 TABLET PER DAY  , 24 MG/26 MG , DURATION : 14 DAYS
     Dates: start: 20210616, end: 20210630
  8. CHLORPROMAZINE [Concomitant]
     Active Substance: CHLORPROMAZINE
     Indication: Product used for unknown indication
     Dosage: 100 MILLIGRAM DAILY; 1 TABLET MORNING AND EVENING , FORM STRENGTH : 25 MG
  9. HALDOL [Concomitant]
     Active Substance: HALOPERIDOL
     Indication: Product used for unknown indication
     Dosage: 10 MILLIGRAM DAILY; 1 TABLET MORNING AND EVENING  , FORM STRENGTH : 5 MG
  10. NALTREXONE MYLAN [Concomitant]
     Indication: Product used for unknown indication
     Dosage: 50 MILLIGRAM DAILY; 1 TABLET IN THE MORNING
  11. BIPERIDEN [Concomitant]
     Active Substance: BIPERIDEN
     Indication: Product used for unknown indication
     Dosage: 4 MILLIGRAM DAILY; 1 TABLET IN THE MORNING   , COATED PROLONGED-RELEASE TABLET , FORM STRENGTH : 4 M

REACTIONS (1)
  - Drug reaction with eosinophilia and systemic symptoms [Recovered/Resolved]

NARRATIVE: CASE EVENT DATE: 20210624
